FAERS Safety Report 15307750 (Version 3)
Quarter: 2018Q3

REPORT INFORMATION
  Report Type: Spontaneous
  Country: US (occurrence: US)
  Receive Date: 20180822
  Receipt Date: 20180830
  Transmission Date: 20181010
  Serious: Yes (Hospitalization)
  Sender: FDA-Public Use
  Company Number: US-GLAXOSMITHKLINE-US2018149437

PATIENT
  Age: 83 Year
  Sex: Female

DRUGS (2)
  1. FLOVENT DISKUS [Suspect]
     Active Substance: FLUTICASONE PROPIONATE
     Indication: ASTHMA
     Dosage: 2 PUFF(S), SINGLE
     Dates: start: 20180813, end: 20180813
  2. LOSARTAN. [Concomitant]
     Active Substance: LOSARTAN

REACTIONS (2)
  - Throat tightness [Unknown]
  - Dizziness [Recovering/Resolving]

NARRATIVE: CASE EVENT DATE: 20180813
